FAERS Safety Report 7831874-X (Version None)
Quarter: 2011Q4

REPORT INFORMATION
  Report Type: 
  Country: None (occurrence: None)
  Receive Date: 20111021
  Receipt Date: 20111020
  Transmission Date: 20120403
  Serious: No
  Sender: FDA-Public Use
  Company Number: US-B.I. PHARMACEUTICALS,INC./RIDGEFIELD-2011-BP-24661BP

PATIENT
  Age: 66 Year
  Sex: Female

DRUGS (8)
  1. ZANTAC 150 [Suspect]
  2. DILTIAZEM HCL [Concomitant]
     Indication: HYPERTENSION
     Route: 048
  3. ASPIRIN [Concomitant]
     Indication: PROPHYLAXIS
     Dosage: 81 MG
     Route: 048
  4. MULTI-VITAMIN [Concomitant]
     Indication: PROPHYLAXIS
     Route: 048
  5. CALCIUM CARBONATE [Concomitant]
     Indication: FLATULENCE
     Route: 048
  6. LANOXIN [Concomitant]
     Indication: ARRHYTHMIA
     Route: 048
  7. VITAMINS FOR EYES [Concomitant]
     Indication: PROPHYLAXIS
     Route: 048
  8. ZANTAC 150 [Suspect]
     Indication: DYSPEPSIA
     Dosage: 300 MG
     Route: 048
     Dates: start: 20111019

REACTIONS (2)
  - ERUCTATION [None]
  - FLATULENCE [None]
